FAERS Safety Report 4961482-X (Version None)
Quarter: 2006Q1

REPORT INFORMATION
  Report Type: 
  Country: None (occurrence: None)
  Receive Date: 20060329
  Receipt Date: 20060315
  Transmission Date: 20060701
  Serious: Yes (Disabling)
  Sender: FDA-Public Use
  Company Number: PHH02006JP04540

PATIENT
  Sex: Male

DRUGS (1)
  1. VISUDYNE [Suspect]
     Indication: MACULAR DEGENERATION
     Dosage: 4.6 ML DAILY IV
     Route: 042
     Dates: start: 20041227, end: 20041227

REACTIONS (1)
  - CEREBRAL INFARCTION [None]
